FAERS Safety Report 9160053 (Version 2)
Quarter: 2013Q1

REPORT INFORMATION
  Report Type: Spontaneous
  Country: US (occurrence: None)
  Receive Date: 20130215
  Receipt Date: 20130226
  Transmission Date: 20140127
  Serious: Yes (Hospitalization)
  Sender: FDA-Public Use
  Company Number: IDR-00696

PATIENT
  Sex: Female
  Weight: 92.99 kg

DRUGS (5)
  1. INDERAL LA (PROPRANOLOL HYDROCHLORIDE) LONG-ACTING CAPSULES, 80MG; AKRIMAX ` [Suspect]
     Indication: HEART RATE IRREGULAR
     Route: 048
     Dates: start: 201301
  2. INDERAL LA (PROPRANOLOL HYDROCHLORIDE) LONG-ACTING CAPSULES, 80MG; AKRIMAX ` [Suspect]
     Indication: BLOOD PRESSURE
     Route: 048
     Dates: start: 201301
  3. PROPRANOLOL EXTENDED-RELEASE CAPSULES, 80MG [Suspect]
     Indication: HEART RATE IRREGULAR
     Route: 048
  4. PROPRANOLOL EXTENDED-RELEASE CAPSULES, 80MG [Suspect]
     Indication: BLOOD PRESSURE
     Route: 048
  5. PEPCID (FAMOTIDINE) [Concomitant]

REACTIONS (15)
  - Blood pressure increased [None]
  - Palpitations [None]
  - Palpitations [None]
  - Feeling jittery [None]
  - Tremor [None]
  - Heart rate increased [None]
  - Flushing [None]
  - Tinnitus [None]
  - Hyperhidrosis [None]
  - Heart rate irregular [None]
  - Poor quality sleep [None]
  - Headache [None]
  - Weight increased [None]
  - Feeling abnormal [None]
  - Hypoacusis [None]
